FAERS Safety Report 7454037-9 (Version None)
Quarter: 2011Q2

REPORT INFORMATION
  Report Type: 
  Country: None (occurrence: None)
  Receive Date: 20110502
  Receipt Date: 20110418
  Transmission Date: 20111010
  Serious: Yes (Death)
  Sender: FDA-Public Use
  Company Number: KR-WATSON-2011-05863

PATIENT
  Age: 64 Year
  Sex: Male

DRUGS (4)
  1. FLUOROURACIL [Suspect]
     Indication: GASTRIC CANCER
     Dosage: UNK
  2. OXALIPLATIN [Suspect]
     Indication: GASTRIC CANCER
     Dosage: UNK
  3. FOLINIC ACID [Suspect]
     Indication: GASTRIC CANCER
  4. LEUCOVORIN                         /00566701/ [Suspect]
     Indication: GASTRIC CANCER

REACTIONS (1)
  - INTERSTITIAL LUNG DISEASE [None]
